FAERS Safety Report 8043694-4 (Version None)
Quarter: 2012Q1

REPORT INFORMATION
  Report Type: 
  Country: None (occurrence: None)
  Receive Date: 20120112
  Receipt Date: 20120103
  Transmission Date: 20120608
  Serious: Yes (Hospitalization)
  Sender: FDA-Public Use
  Company Number: CH-ROCHE-380146

PATIENT
  Age: 84 Year
  Sex: Female

DRUGS (7)
  1. TORSEMIDE [Interacting]
  2. ALDACTONE [Suspect]
     Indication: PRODUCT USED FOR UNKNOWN INDICATION
     Route: 048
  3. TORSEMIDE [Interacting]
     Indication: RENAL FAILURE CHRONIC
     Route: 048
  4. ACETYLSALICYLIC ACID SRT [Concomitant]
     Dosage: FILM COATED TABLETS.
     Route: 048
  5. CANDESARTAN CILEXETIL [Suspect]
     Indication: PRODUCT USED FOR UNKNOWN INDICATION
     Route: 048
  6. METOLAZONE [Interacting]
     Indication: NEPHROGENIC ANAEMIA
     Route: 048
     Dates: end: 20111116
  7. CORDARONE [Concomitant]
     Route: 048

REACTIONS (7)
  - BRADYCARDIA [None]
  - RENAL FAILURE CHRONIC [None]
  - HYPERKALAEMIA [None]
  - DEHYDRATION [None]
  - METABOLIC ALKALOSIS [None]
  - DRUG INTERACTION [None]
  - HYPOKALAEMIA [None]
